FAERS Safety Report 16051188 (Version 1)
Quarter: 2019Q1

REPORT INFORMATION
  Report Type: Spontaneous
  Country: US (occurrence: US)
  Receive Date: 20190308
  Receipt Date: 20190308
  Transmission Date: 20190418
  Serious: No
  Sender: FDA-Public Use
  Company Number: US-PFIZER INC-2019099311

PATIENT
  Age: 56 Year
  Sex: Female

DRUGS (4)
  1. CORTISPORIN-TC [Suspect]
     Active Substance: COLISTIN SULFATE\HYDROCORTISONE ACETATE\NEOMYCIN SULFATE\THONZONIUM BROMIDE
     Dosage: UNK
  2. COLISTIN SULFATE [Suspect]
     Active Substance: COLISTIN SULFATE
     Dosage: UNK
  3. THONZONIUM BROMIDE [Suspect]
     Active Substance: THONZONIUM BROMIDE
     Dosage: UNK
  4. NEOMYCIN SULFATE. [Suspect]
     Active Substance: NEOMYCIN SULFATE
     Dosage: UNK

REACTIONS (1)
  - Drug hypersensitivity [Unknown]
